FAERS Safety Report 14141887 (Version 2)
Quarter: 2017Q4

REPORT INFORMATION
  Report Type: Spontaneous
  Country: US (occurrence: US)
  Receive Date: 20171030
  Receipt Date: 20171109
  Transmission Date: 20180321
  Serious: No
  Sender: FDA-Public Use
  Company Number: US-PFIZER INC-2017461235

PATIENT
  Age: 64 Year
  Sex: Female

DRUGS (2)
  1. EPINEPHRINE. [Suspect]
     Active Substance: EPINEPHRINE
     Dosage: UNK
  2. TRIPLEX [Suspect]
     Active Substance: ACETAMINOPHEN\ASPIRIN\CODEINE PHOSPHATE
     Dosage: UNK

REACTIONS (1)
  - Drug hypersensitivity [Unknown]
